FAERS Safety Report 8965230 (Version 2)
Quarter: 2013Q4

REPORT INFORMATION
  Report Type: Spontaneous
  Country: US (occurrence: US)
  Receive Date: 20121213
  Receipt Date: 20131209
  Transmission Date: 20140711
  Serious: No
  Sender: FDA-Public Use
  Company Number: US-BRISTOL-MYERS SQUIBB COMPANY-16861957

PATIENT
  Age: 57 Year
  Sex: Female

DRUGS (1)
  1. IXEMPRA [Suspect]
     Indication: BREAST CANCER METASTATIC
     Route: 042
     Dates: start: 20120405, end: 20120712

REACTIONS (1)
  - Neuropathy peripheral [Unknown]
